FAERS Safety Report 6192334-8 (Version None)
Quarter: 2009Q2

REPORT INFORMATION
  Report Type: 
  Country: None (occurrence: None)
  Receive Date: 20090518
  Receipt Date: 20070316
  Transmission Date: 20091009
  Serious: Yes (Hospitalization, Other)
  Sender: FDA-Public Use
  Company Number: US-ASTRAZENECA-2006UW10935

PATIENT
  Age: 14060 Day
  Sex: Female
  Weight: 92.1 kg

DRUGS (18)
  1. SEROQUEL [Suspect]
     Dosage: 25 - 125 MG
     Route: 048
     Dates: start: 20041203
  2. ZYPREXA [Suspect]
     Dosage: 25 - 125 MG
     Route: 048
  3. ZOCOR [Concomitant]
     Route: 065
  4. SYNTHROID [Concomitant]
     Route: 065
  5. GEODON [Concomitant]
     Route: 065
  6. LORTAB [Concomitant]
     Dosage: 500/5 MG
     Route: 065
  7. FLONASE [Concomitant]
     Route: 065
  8. GLUCOPHAGE [Concomitant]
     Route: 065
  9. LIPITOR [Concomitant]
     Route: 048
  10. DESYREL [Concomitant]
     Dosage: 100 - 200 MG
     Route: 048
  11. DEPAKOTE [Concomitant]
     Dosage: 250 - 500 MG
     Route: 065
  12. NAPROSYN [Concomitant]
     Route: 065
  13. ZESTRIL [Concomitant]
     Route: 065
  14. CLONIDINE HCL [Concomitant]
     Route: 065
  15. HYDROCHLOROTHIAZIDE [Concomitant]
     Route: 048
  16. LORAZEPAM [Concomitant]
     Dosage: 1 -2 MG
     Route: 065
  17. RISPERDAL [Concomitant]
     Route: 065
  18. ENOXAPARIN SODIUM [Concomitant]
     Dosage: 30 - 60 MG
     Route: 065

REACTIONS (41)
  - ABDOMINAL PAIN [None]
  - AGGRESSION [None]
  - ANGINA UNSTABLE [None]
  - BACK PAIN [None]
  - BIPOLAR DISORDER [None]
  - BLOOD PRESSURE DECREASED [None]
  - BRONCHOPNEUMONIA [None]
  - CHEST PAIN [None]
  - CONFUSIONAL STATE [None]
  - CONSTIPATION [None]
  - COUGH [None]
  - DIABETES MELLITUS [None]
  - DIARRHOEA [None]
  - EAR PAIN [None]
  - GASTRITIS [None]
  - HEADACHE [None]
  - HYPOKALAEMIA [None]
  - HYPOMANIA [None]
  - HYSTERECTOMY [None]
  - INFLUENZA [None]
  - NASAL CONGESTION [None]
  - NASOPHARYNGITIS [None]
  - NAUSEA [None]
  - OBESITY [None]
  - OROPHARYNGEAL PAIN [None]
  - PAIN [None]
  - PAIN IN EXTREMITY [None]
  - PELVIC PAIN [None]
  - PLEURISY [None]
  - PSYCHOTIC DISORDER [None]
  - PYREXIA [None]
  - RHINITIS ALLERGIC [None]
  - SINUS HEADACHE [None]
  - SINUS TACHYCARDIA [None]
  - SINUSITIS [None]
  - SLEEP APNOEA SYNDROME [None]
  - TENDERNESS [None]
  - TYPE 2 DIABETES MELLITUS [None]
  - UPPER RESPIRATORY TRACT INFECTION [None]
  - VIRAL INFECTION [None]
  - VOMITING [None]
